FAERS Safety Report 9491210 (Version 4)
Quarter: 2018Q3

REPORT INFORMATION
  Report Type: Report from Study
  Country: BR (occurrence: BR)
  Receive Date: 20130830
  Receipt Date: 20180717
  Transmission Date: 20181010
  Serious: Yes (Other)
  Sender: FDA-Public Use
  Company Number: BR-ROCHE-1265640

PATIENT
  Sex: Female
  Weight: 57 kg

DRUGS (9)
  1. ACTEMRA [Suspect]
     Active Substance: TOCILIZUMAB
     Indication: RHEUMATOID ARTHRITIS
     Route: 042
     Dates: start: 20120124, end: 20130708
  2. CYMBALTA [Concomitant]
     Active Substance: DULOXETINE HYDROCHLORIDE
  3. DEFLAZACORT [Concomitant]
     Active Substance: DEFLAZACORT
  4. SOMALGEN [Concomitant]
  5. FLUVASTATIN [Concomitant]
     Active Substance: FLUVASTATIN SODIUM
  6. RIVOTRIL [Concomitant]
     Active Substance: CLONAZEPAM
     Route: 065
  7. OMEPRAZOLE. [Concomitant]
     Active Substance: OMEPRAZOLE
  8. LEVOTHYROXINE. [Concomitant]
     Active Substance: LEVOTHYROXINE
  9. SULFASALAZINE. [Concomitant]
     Active Substance: SULFASALAZINE

REACTIONS (5)
  - Labyrinthitis [Recovered/Resolved]
  - Benign neoplasm of skin [Recovered/Resolved]
  - Therapeutic response decreased [Unknown]
  - Vomiting [Recovered/Resolved]
  - Weight decreased [Recovered/Resolved]
